FAERS Safety Report 4357254-X (Version None)
Quarter: 2004Q2

REPORT INFORMATION
  Report Type: 
  Country: None (occurrence: None)
  Receive Date: 20040512
  Receipt Date: 20040512
  Transmission Date: 20050107
  Serious: Yes (Other)
  Sender: FDA-Public Use
  Company Number: None

PATIENT
  Age: 48 Year
  Sex: Male
  Weight: 67.1324 kg

DRUGS (2)
  1. LIPITOR [Suspect]
     Dosage: 80 MG Q HS [SEVERAL MONTHS]
  2. MOBIC [Concomitant]

REACTIONS (3)
  - ABDOMINAL DISTENSION [None]
  - DRUG EFFECT DECREASED [None]
  - FATIGUE [None]
